FAERS Safety Report 13120662 (Version 1)
Quarter: 2017Q1

REPORT INFORMATION
  Report Type: Report from Study
  Country: BG (occurrence: BG)
  Receive Date: 20170117
  Receipt Date: 20170117
  Transmission Date: 20170428
  Serious: Yes (Hospitalization, Other)
  Sender: FDA-Public Use
  Company Number: BG-AMGEN-BGRSL2017005967

PATIENT
  Age: 63 Year
  Sex: Female
  Weight: 70 kg

DRUGS (4)
  1. VECTIBIX [Suspect]
     Active Substance: PANITUMUMAB
     Indication: COLORECTAL CANCER METASTATIC
     Dosage: 300/ 2 TIMES MONTHLY
     Route: 065
     Dates: start: 20160617, end: 20170112
  2. VECTIBIX [Suspect]
     Active Substance: PANITUMUMAB
     Indication: METASTASES TO LIVER
  3. XELOX [Concomitant]
     Active Substance: CAPECITABINE\OXALIPLATIN
     Indication: METASTASES TO LIVER
  4. XELOX [Concomitant]
     Active Substance: CAPECITABINE\OXALIPLATIN
     Indication: COLORECTAL CANCER METASTATIC
     Dosage: UNK
     Dates: start: 20160617, end: 20170112

REACTIONS (4)
  - Chromaturia [Not Recovered/Not Resolved]
  - Off label use [Recovered/Resolved]
  - Asthenia [Not Recovered/Not Resolved]
  - Decreased appetite [Not Recovered/Not Resolved]

NARRATIVE: CASE EVENT DATE: 20160617
